FAERS Safety Report 8901942 (Version 1)
Quarter: 2012Q4

REPORT INFORMATION
  Report Type: Spontaneous
  Country: US (occurrence: None)
  Receive Date: 20121109
  Receipt Date: 20121109
  Transmission Date: 20130627
  Serious: Yes (Life-Threatening, Hospitalization)
  Sender: FDA-Public Use
  Company Number: None

PATIENT
  Age: 19 Year
  Sex: Male
  Weight: 49.9 kg

DRUGS (1)
  1. KEPPRA 750MG (GENERIC) UNKNOWN [Suspect]
     Indication: EPILEPSY
     Dates: start: 2006

REACTIONS (2)
  - Status epilepticus [None]
  - Sinusitis [None]
